FAERS Safety Report 19162578 (Version 2)
Quarter: 2021Q2

REPORT INFORMATION
  Report Type: Report from Study
  Country: CN (occurrence: CN)
  Receive Date: 20210420
  Receipt Date: 20210423
  Transmission Date: 20210717
  Serious: Yes (Other)
  Sender: FDA-Public Use
  Company Number: CN-BRISTOL-MYERS SQUIBB COMPANY-BMS-2021-036245

PATIENT
  Age: 38 Year
  Sex: Female

DRUGS (1)
  1. NIVOLUMAB [Suspect]
     Active Substance: NIVOLUMAB
     Indication: GASTRIC CANCER
     Dosage: 120 MILLIGRAM, Q2WK
     Route: 041
     Dates: start: 20210302

REACTIONS (1)
  - Neutropenia [Unknown]

NARRATIVE: CASE EVENT DATE: 20210315
